FAERS Safety Report 8234868-8 (Version None)
Quarter: 2012Q1

REPORT INFORMATION
  Report Type: 
  Country: None (occurrence: None)
  Receive Date: 20120326
  Receipt Date: 20120314
  Transmission Date: 20120608
  Serious: Yes (Hospitalization)
  Sender: FDA-Public Use
  Company Number: FR-BRISTOL-MYERS SQUIBB COMPANY-16446015

PATIENT
  Age: 46 Year
  Sex: Male

DRUGS (3)
  1. CISPLATIN [Suspect]
     Indication: NON-SMALL CELL LUNG CANCER STAGE III
     Dosage: MOST RECENT DOSE ON 11AUG2011.
     Dates: start: 20110629
  2. CETUXIMAB [Suspect]
     Indication: NON-SMALL CELL LUNG CANCER STAGE III
     Dosage: MOST RECENT DOSE ON 18AUG2011.
     Dates: start: 20110629
  3. PEMETREXED DISODIUM [Suspect]
     Indication: NON-SMALL CELL LUNG CANCER STAGE III
     Dosage: LAST DOSE ON 11AUG2011
     Dates: start: 20110629

REACTIONS (2)
  - APHAGIA [None]
  - OESOPHAGITIS [None]
